FAERS Safety Report 12092371 (Version 3)
Quarter: 2016Q2

REPORT INFORMATION
  Report Type: Other
  Country: US (occurrence: US)
  Receive Date: 20160219
  Receipt Date: 20160427
  Transmission Date: 20160815
  Serious: Yes (Death, Congenital Anomaly)
  Sender: FDA-Public Use
  Company Number: US-PSKUSFDA-2016-US-0077

PATIENT

DRUGS (1)
  1. SANCUSO [Suspect]
     Active Substance: GRANISETRON
     Indication: FOETAL EXPOSURE DURING PREGNANCY
     Dosage: 1 PATCH ON MOTHER

REACTIONS (2)
  - Foetal exposure during pregnancy [Unknown]
  - Congenital anomaly [None]
